FAERS Safety Report 15043033 (Version 4)
Quarter: 2020Q1

REPORT INFORMATION
  Report Type: Spontaneous
  Country: US (occurrence: US)
  Receive Date: 20180621
  Receipt Date: 20200324
  Transmission Date: 20200409
  Serious: Yes (Other)
  Sender: FDA-Public Use
  Company Number: US-SAKK-2018SA156881AA

PATIENT
  Age: 51 Year
  Sex: Male

DRUGS (1)
  1. DUPILUMAB [Suspect]
     Active Substance: DUPILUMAB
     Indication: DERMATITIS ATOPIC
     Dosage: 300 MG, QOW
     Route: 058
     Dates: start: 20180501

REACTIONS (4)
  - Staphylococcal infection [Recovered/Resolved]
  - Oral herpes [Unknown]
  - Facial paralysis [Unknown]
  - Shoulder operation [Unknown]

NARRATIVE: CASE EVENT DATE: 20180528
